FAERS Safety Report 7411939-7 (Version None)
Quarter: 2011Q2

REPORT INFORMATION
  Report Type: 
  Country: None (occurrence: None)
  Receive Date: 20110408
  Receipt Date: 20110408
  Transmission Date: 20111010
  Serious: Yes (Hospitalization)
  Sender: FDA-Public Use
  Company Number: None

PATIENT
  Sex: Female
  Weight: 58 kg

DRUGS (10)
  1. RITUXIMAB (MOAB C2B8 ANTI CD20 CHIMERIC) [Suspect]
     Dosage: 542 MG
  2. PEGFILGRASTIM [Concomitant]
  3. CYCLOPHOSPHAMIDE [Suspect]
     Dosage: 1083 MG
  4. DOXORUBICIN HCL [Suspect]
     Dosage: 72 MG
  5. PREDNISONE [Suspect]
     Dosage: 300 MG
  6. VANCOMYCIN [Concomitant]
  7. LEVOFLOXACIN [Concomitant]
  8. CLINDAMYCIN [Concomitant]
  9. PIPERACILLIN AND TAZOBACTAM [Concomitant]
  10. VINCRISTINE SULFATE [Suspect]
     Dosage: 2 MG

REACTIONS (7)
  - HYPOTENSION [None]
  - INFECTION [None]
  - NEUTROPENIA [None]
  - COUGH [None]
  - PYREXIA [None]
  - HEART RATE INCREASED [None]
  - SEPSIS [None]
